FAERS Safety Report 9022445 (Version 7)
Quarter: 2013Q3

REPORT INFORMATION
  Report Type: Spontaneous
  Country: US (occurrence: US)
  Receive Date: 20130118
  Receipt Date: 20130905
  Transmission Date: 20140515
  Serious: Yes (Hospitalization, Other)
  Sender: FDA-Public Use
  Company Number: US-009507513-1301USA008186

PATIENT
  Sex: Female
  Weight: 56.69 kg

DRUGS (8)
  1. FOSAMAX [Suspect]
     Indication: OSTEOPENIA
     Dosage: 5 MG, UNK
     Route: 048
     Dates: start: 20000918, end: 20010817
  2. FOSAMAX [Suspect]
     Dosage: 70 MG, UNK
     Route: 048
     Dates: start: 20011009
  3. ALENDRONATE SODIUM [Suspect]
     Indication: OSTEOPENIA
     Dosage: UNK
     Route: 048
     Dates: end: 2007
  4. BONIVA [Suspect]
     Indication: OSTEOPENIA
     Dosage: UNK
     Route: 048
     Dates: start: 2007, end: 20111113
  5. VITAMINS (UNSPECIFIED) [Concomitant]
     Dosage: 1 DF, QD
     Dates: start: 1990
  6. CALCIUM (UNSPECIFIED) [Concomitant]
     Dosage: 600 MG, UNK
     Dates: start: 1990
  7. LEVOXYL [Concomitant]
     Indication: HYPOTHYROIDISM
     Dosage: 137 MICROGRAM, QD
     Dates: start: 1997
  8. BIOHIST-LA [Concomitant]
     Indication: HYPERSENSITIVITY
     Dosage: UNK
     Dates: start: 2000, end: 2006

REACTIONS (10)
  - Open reduction of fracture [Unknown]
  - Anaemia [Unknown]
  - Joint arthroplasty [Unknown]
  - Femur fracture [Unknown]
  - Low turnover osteopathy [Unknown]
  - Osteoarthritis [Unknown]
  - Osteoarthritis [Unknown]
  - Chondrocalcinosis [Unknown]
  - Bone disorder [Unknown]
  - Insomnia [Unknown]
